FAERS Safety Report 11500560 (Version 3)
Quarter: 2016Q1

REPORT INFORMATION
  Report Type: Spontaneous
  Country: US (occurrence: US)
  Receive Date: 20150914
  Receipt Date: 20160324
  Transmission Date: 20160525
  Serious: Yes (Other)
  Sender: FDA-Public Use
  Company Number: US-PFIZER INC-2015294418

PATIENT
  Age: 74 Year
  Sex: Female
  Weight: 87 kg

DRUGS (2)
  1. IBUPROFEN. [Concomitant]
     Active Substance: IBUPROFEN
     Dosage: ^TOOK THREE IBUPROFEN THAT WAS ALL^
  2. LYRICA [Suspect]
     Active Substance: PREGABALIN
     Indication: FIBROMYALGIA
     Dosage: 150 MG, UNK

REACTIONS (6)
  - Intentional overdose [Unknown]
  - Pain [Unknown]
  - Dizziness [Unknown]
  - Drug ineffective [Unknown]
  - Hypoxia [Unknown]
  - Nasopharyngitis [Unknown]
